FAERS Safety Report 15615380 (Version 1)
Quarter: 2018Q4

REPORT INFORMATION
  Report Type: Spontaneous
  Country: US (occurrence: US)
  Receive Date: 20181114
  Receipt Date: 20181114
  Transmission Date: 20190205
  Serious: No
  Sender: FDA-Public Use
  Company Number: US-009507513-1810USA009359

PATIENT
  Age: 16 Year
  Sex: Female

DRUGS (2)
  1. NUVARING [Suspect]
     Active Substance: ETHINYL ESTRADIOL\ETONOGESTREL
     Dosage: 1 RING FOR 3 WEEKS PER MONTH
     Route: 067
     Dates: start: 20180510
  2. PRISTIQ EXTENDED-RELEASE [Concomitant]
     Active Substance: DESVENLAFAXINE SUCCINATE
     Dosage: UNK

REACTIONS (4)
  - Adverse event [Not Recovered/Not Resolved]
  - Product size issue [Not Recovered/Not Resolved]
  - Device expulsion [Not Recovered/Not Resolved]
  - Product shape issue [Not Recovered/Not Resolved]

NARRATIVE: CASE EVENT DATE: 2018
